FAERS Safety Report 7463498-0 (Version None)
Quarter: 2011Q2

REPORT INFORMATION
  Report Type: 
  Country: None (occurrence: None)
  Receive Date: 20110506
  Receipt Date: 20110427
  Transmission Date: 20111010
  Serious: Yes (Other)
  Sender: FDA-Public Use
  Company Number: PHHO2010US03555

PATIENT
  Sex: Male
  Weight: 119.8 kg

DRUGS (3)
  1. GILENYA [Suspect]
     Indication: RELAPSING-REMITTING MULTIPLE SCLEROSIS
     Dosage: 0.5MG
     Route: 048
     Dates: start: 20080804
  2. AMLODIPINE BESYLATE [Concomitant]
  3. LISINOPRIL [Concomitant]

REACTIONS (5)
  - IMMUNOSUPPRESSION [None]
  - PALLOR [None]
  - ATRIAL FIBRILLATION [None]
  - ARRHYTHMIA [None]
  - HEART RATE INCREASED [None]
